FAERS Safety Report 23551936 (Version 1)
Quarter: 2024Q1

REPORT INFORMATION
  Report Type: Spontaneous
  Country: US (occurrence: US)
  Receive Date: 20240222
  Receipt Date: 20240222
  Transmission Date: 20240410
  Serious: No
  Sender: FDA-Public Use
  Company Number: US-BRISTOL-MYERS SQUIBB COMPANY-2024-012898

PATIENT
  Age: 62 Year
  Sex: Male

DRUGS (2)
  1. THALOMID [Suspect]
     Active Substance: THALIDOMIDE
     Indication: Lichen planus
     Route: 048
  2. THALOMID [Suspect]
     Active Substance: THALIDOMIDE
     Dosage: STRENGTH: 50MG
     Route: 048

REACTIONS (1)
  - Off label use [Unknown]
